FAERS Safety Report 6847032-1 (Version None)
Quarter: 2010Q3

REPORT INFORMATION
  Report Type: 
  Country: None (occurrence: None)
  Receive Date: 20100716
  Receipt Date: 20100707
  Transmission Date: 20110219
  Serious: Yes (Hospitalization, Other)
  Sender: FDA-Public Use
  Company Number: DE-BIOGENIDEC-2010BI013023

PATIENT
  Age: 46 Year
  Sex: Male
  Weight: 77 kg

DRUGS (4)
  1. TYSABRI [Suspect]
     Indication: MULTIPLE SCLEROSIS
     Route: 042
     Dates: start: 20070404, end: 20091115
  2. TYSABRI [Suspect]
     Route: 042
     Dates: start: 20100115
  3. METHYLPREDNISOLONE [Concomitant]
     Indication: MULTIPLE SCLEROSIS
     Dates: start: 20091101
  4. METHYLPREDNISOLONE [Concomitant]
     Dates: start: 20091101

REACTIONS (2)
  - PSEUDOMONAL SEPSIS [None]
  - RENAL FAILURE ACUTE [None]
